FAERS Safety Report 13456530 (Version 2)
Quarter: 2017Q2

REPORT INFORMATION
  Report Type: Spontaneous
  Country: DE (occurrence: DE)
  Receive Date: 20170418
  Receipt Date: 20170508
  Transmission Date: 20170830
  Serious: Yes (Hospitalization, Other)
  Sender: FDA-Public Use
  Company Number: DE-GLAXOSMITHKLINE-PL2017GSK042012

PATIENT
  Age: 68 Year
  Sex: Male

DRUGS (1)
  1. REQUIP [Suspect]
     Active Substance: ROPINIROLE HYDROCHLORIDE
     Indication: PRODUCT USED FOR UNKNOWN INDICATION
     Dosage: UNK

REACTIONS (10)
  - Drug ineffective [Recovering/Resolving]
  - Nosocomial infection [Unknown]
  - Nocturnal dyspnoea [Unknown]
  - Atrioventricular block [Unknown]
  - Chest discomfort [Unknown]
  - Angina pectoris [Recovered/Resolved]
  - Body temperature increased [Recovered/Resolved]
  - Pain [Unknown]
  - Condition aggravated [Unknown]
  - Klebsiella infection [Recovering/Resolving]

NARRATIVE: CASE EVENT DATE: 201703
